FAERS Safety Report 14159073 (Version 1)
Quarter: 2017Q4

REPORT INFORMATION
  Report Type: Spontaneous
  Country: IT (occurrence: IT)
  Receive Date: 20171106
  Receipt Date: 20171106
  Transmission Date: 20180321
  Serious: Yes (Other)
  Sender: FDA-Public Use
  Company Number: IT-ACCORD-059907

PATIENT
  Age: 69 Year
  Sex: Male

DRUGS (3)
  1. AVASTIN [Suspect]
     Active Substance: BEVACIZUMAB
     Indication: ADENOCARCINOMA OF COLON
     Dosage: ON DAY 1 EVERY 15 DAYS
     Route: 042
     Dates: start: 20160822, end: 20170329
  2. FLUOROURACIL. [Suspect]
     Active Substance: FLUOROURACIL
     Indication: ADENOCARCINOMA OF COLON
     Dosage: 2590 MG CYCLICAL
     Route: 042
     Dates: start: 20160822, end: 20170301
  3. OXALIPLATIN. [Suspect]
     Active Substance: OXALIPLATIN
     Indication: ADENOCARCINOMA OF COLON
     Dosage: ON DAY 1 EVERY 15 DAYS
     Route: 042
     Dates: start: 20160822, end: 20170301

REACTIONS (3)
  - Hypertension [Recovered/Resolved]
  - Epistaxis [Recovered/Resolved]
  - Neutropenia [Recovered/Resolved]

NARRATIVE: CASE EVENT DATE: 20161130
